FAERS Safety Report 8156836-7 (Version None)
Quarter: 2012Q1

REPORT INFORMATION
  Report Type: 
  Country: None (occurrence: None)
  Receive Date: 20120222
  Receipt Date: 20120217
  Transmission Date: 20120608
  Serious: Yes (Other)
  Sender: FDA-Public Use
  Company Number: US-GLAXOSMITHKLINE-A0945465A

PATIENT
  Age: 81 Year
  Sex: Male

DRUGS (9)
  1. ADVAIR DISKUS 100/50 [Suspect]
     Indication: ASTHMA
     Dosage: 2PUFF PER DAY
     Route: 055
     Dates: start: 20021001, end: 20110801
  2. TRICOR [Concomitant]
  3. METFORMIN HCL [Concomitant]
  4. TAMSULOSIN HCL [Concomitant]
  5. LIPITOR [Concomitant]
  6. GLIMEPIRIDE [Concomitant]
  7. ADVAIR DISKUS 100/50 [Suspect]
     Dosage: 2SPR TWICE PER DAY
     Route: 055
     Dates: start: 20110801
  8. SYNTHROID [Concomitant]
  9. WARFARIN SODIUM [Concomitant]

REACTIONS (5)
  - HEADACHE [None]
  - DIARRHOEA [None]
  - DRUG INEFFECTIVE [None]
  - ASTHMA [None]
  - PRODUCT QUALITY ISSUE [None]
